FAERS Safety Report 8489136-6 (Version None)
Quarter: 2012Q3

REPORT INFORMATION
  Report Type: 
  Country: None (occurrence: None)
  Receive Date: 20120705
  Receipt Date: 20120629
  Transmission Date: 20120928
  Serious: Yes (Life-Threatening, Hospitalization, Other)
  Sender: FDA-Public Use
  Company Number: PHHY2011FR55916

PATIENT
  Sex: Female
  Weight: 50 kg

DRUGS (7)
  1. TASIGNA [Suspect]
     Dosage: 400 MG,DAILY
     Route: 048
     Dates: start: 20110705
  2. TASIGNA [Suspect]
     Dosage: 600 MG, DAILY
     Dates: start: 20111003
  3. TASIGNA [Suspect]
     Dosage: 400 MG, BID
     Route: 048
     Dates: start: 20100506, end: 20110409
  4. TASIGNA [Suspect]
     Dosage: 400 MG,DAILY
     Dates: start: 20111022
  5. ESOMEPRAZOLE [Concomitant]
     Dosage: UNK
     Dates: start: 20110501
  6. TASIGNA [Suspect]
     Indication: CHRONIC MYELOID LEUKAEMIA
     Dosage: 400 MG, DAILY
     Dates: start: 20100601, end: 20110409
  7. ASPEGIC 1000 [Concomitant]
     Indication: PERICARDITIS
     Dosage: 3 G, UNK
     Route: 048
     Dates: start: 20110501, end: 20111115

REACTIONS (11)
  - PERICARDIAL EFFUSION [None]
  - ASTHENIA [None]
  - PERICARDIAL DISEASE [None]
  - CARDIOGENIC SHOCK [None]
  - VISION BLURRED [None]
  - ALANINE AMINOTRANSFERASE INCREASED [None]
  - PLEURAL EFFUSION [None]
  - ASPARTATE AMINOTRANSFERASE INCREASED [None]
  - PYREXIA [None]
  - CARDIAC TAMPONADE [None]
  - PLEUROPERICARDITIS [None]
